FAERS Safety Report 7273179-4 (Version None)
Quarter: 2011Q1

REPORT INFORMATION
  Report Type: 
  Country: None (occurrence: None)
  Receive Date: 20110203
  Receipt Date: 20110131
  Transmission Date: 20110831
  Serious: Yes (Other)
  Sender: FDA-Public Use
  Company Number: KR-JNJCH-2011002369

PATIENT
  Age: 60 Year
  Sex: Male

DRUGS (1)
  1. NICORETTE [Suspect]
     Indication: PRODUCT USED FOR UNKNOWN INDICATION
     Route: 062
     Dates: start: 20110127, end: 20110129

REACTIONS (1)
  - DEAFNESS [None]
